FAERS Safety Report 23768034 (Version 1)
Quarter: 2024Q2

REPORT INFORMATION
  Report Type: Spontaneous
  Country: JP (occurrence: JP)
  Receive Date: 20240422
  Receipt Date: 20240422
  Transmission Date: 20240716
  Serious: Yes (Other)
  Sender: FDA-Public Use
  Company Number: JP-GILEAD-2024-0669686

PATIENT
  Age: 69 Year
  Sex: Male

DRUGS (8)
  1. VEKLURY [Suspect]
     Active Substance: REMDESIVIR
     Indication: COVID-19
     Dosage: UNK
     Route: 065
     Dates: start: 202304, end: 2023
  2. VEKLURY [Suspect]
     Active Substance: REMDESIVIR
     Indication: COVID-19 pneumonia
     Dosage: UNK
     Route: 065
     Dates: start: 2023, end: 2023
  3. VEKLURY [Suspect]
     Active Substance: REMDESIVIR
     Dosage: UNK
     Route: 065
     Dates: start: 2023
  4. METHYLPREDNISOLONE [Concomitant]
     Active Substance: METHYLPREDNISOLONE
     Dosage: 120 MG
     Dates: start: 2023, end: 2023
  5. METHYLPREDNISOLONE [Concomitant]
     Active Substance: METHYLPREDNISOLONE
     Dosage: UNK
     Dates: start: 2023
  6. CILGAVIMAB\TIXAGEVIMAB [Concomitant]
     Active Substance: CILGAVIMAB\TIXAGEVIMAB
     Dosage: UNK
     Dates: start: 2023
  7. PREDNISOLONE [Concomitant]
     Active Substance: PREDNISOLONE
     Dosage: 50 MG
     Dates: start: 2023, end: 2023
  8. PREDNISOLONE [Concomitant]
     Active Substance: PREDNISOLONE
     Dosage: 45 MG
     Dates: start: 2023

REACTIONS (2)
  - Opportunistic infection [Unknown]
  - Hypogammaglobulinaemia [Unknown]

NARRATIVE: CASE EVENT DATE: 20230101
